FAERS Safety Report 12962285 (Version 1)
Quarter: 2016Q4

REPORT INFORMATION
  Report Type: Spontaneous
  Country: US (occurrence: US)
  Receive Date: 20161121
  Receipt Date: 20161121
  Transmission Date: 20170207
  Serious: No
  Sender: FDA-Public Use
  Company Number: US-ALLERGAN-1654677US

PATIENT
  Sex: Female
  Weight: 57.14 kg

DRUGS (8)
  1. FLONASE [Suspect]
     Active Substance: FLUTICASONE PROPIONATE
     Indication: SINUS CONGESTION
  2. IBUPROFEN. [Concomitant]
     Active Substance: IBUPROFEN
     Indication: SINUS CONGESTION
     Dosage: 2-2 PILL
  3. LUMIGAN [Interacting]
     Active Substance: BIMATOPROST
     Indication: INTRAOCULAR PRESSURE INCREASED
     Dosage: UNK UNK, BID
     Route: 047
  4. FLONASE [Suspect]
     Active Substance: FLUTICASONE PROPIONATE
     Indication: EYE DISORDER
  5. COMBIGAN [Suspect]
     Active Substance: BRIMONIDINE TARTRATE\TIMOLOL MALEATE
     Indication: GLAUCOMA
     Dosage: 2 GTT, BID
     Route: 047
     Dates: start: 201510, end: 20160418
  6. FLONASE [Suspect]
     Active Substance: FLUTICASONE PROPIONATE
     Indication: HYPERSENSITIVITY
     Dosage: 2 AD, BID
     Dates: start: 20160330
  7. IBUPROFEN. [Concomitant]
     Active Substance: IBUPROFEN
     Indication: EYE PAIN
  8. AZOPT [Suspect]
     Active Substance: BRINZOLAMIDE
     Indication: INTRAOCULAR PRESSURE INCREASED
     Dosage: UNK UNK, BID

REACTIONS (18)
  - Ear congestion [Unknown]
  - Eyelid exfoliation [Not Recovered/Not Resolved]
  - Pruritus [Not Recovered/Not Resolved]
  - Eye swelling [Unknown]
  - Headache [Unknown]
  - Eye pain [Recovering/Resolving]
  - Drug ineffective [Unknown]
  - Photopsia [Unknown]
  - Ocular hyperaemia [Recovering/Resolving]
  - Respiratory tract congestion [Unknown]
  - Sinusitis [Recovering/Resolving]
  - Corneal abrasion [Unknown]
  - Eye irritation [Recovering/Resolving]
  - Dry eye [Recovering/Resolving]
  - Dyspnoea [Not Recovered/Not Resolved]
  - Viral infection [Unknown]
  - Drug interaction [Unknown]
  - Hypersensitivity [Unknown]
